FAERS Safety Report 24539016 (Version 1)
Quarter: 2024Q4

REPORT INFORMATION
  Report Type: Spontaneous
  Country: GB (occurrence: GB)
  Receive Date: 20241023
  Receipt Date: 20241023
  Transmission Date: 20250115
  Serious: Yes (Death, Hospitalization)
  Sender: STRIDES
  Company Number: GB-STRIDES ARCOLAB LIMITED-2024SP013539

PATIENT
  Age: 5 Decade
  Sex: Female

DRUGS (19)
  1. HYDROCORTISONE [Suspect]
     Active Substance: HYDROCORTISONE
     Indication: Hypoglycaemia
     Dosage: UNK
     Route: 065
     Dates: start: 200906
  2. PREDNISOLONE [Suspect]
     Active Substance: PREDNISOLONE
     Indication: Hypoglycaemia
     Dosage: 30 MILLIGRAM, QD
     Route: 065
  3. ETOPOSIDE [Suspect]
     Active Substance: ETOPOSIDE
     Indication: Adrenocortical carcinoma
     Dosage: UNK, CYCLICAL (6 CYCLES)
     Route: 065
     Dates: start: 200908
  4. ETOPOSIDE [Suspect]
     Active Substance: ETOPOSIDE
     Indication: Metastases to liver
  5. ETOPOSIDE [Suspect]
     Active Substance: ETOPOSIDE
     Indication: Metastases to lung
  6. DOXORUBICIN [Suspect]
     Active Substance: DOXORUBICIN
     Indication: Adrenocortical carcinoma
     Dosage: UNK, CYCLICAL (6 CYCLES)
     Route: 065
     Dates: start: 200908
  7. DOXORUBICIN [Suspect]
     Active Substance: DOXORUBICIN
     Indication: Metastases to liver
  8. DOXORUBICIN [Suspect]
     Active Substance: DOXORUBICIN
     Indication: Metastases to lung
  9. CISPLATIN [Suspect]
     Active Substance: CISPLATIN
     Indication: Adrenocortical carcinoma
     Dosage: UNK, CYCLICAL (6 CYCLES)
     Route: 065
     Dates: start: 200908
  10. CISPLATIN [Suspect]
     Active Substance: CISPLATIN
     Indication: Metastases to liver
  11. CISPLATIN [Suspect]
     Active Substance: CISPLATIN
     Indication: Metastases to lung
  12. DEXAMETHASONE [Suspect]
     Active Substance: DEXAMETHASONE
     Indication: Hypoglycaemia
     Dosage: 8 MILLIGRAM
     Route: 065
  13. DEXAMETHASONE [Suspect]
     Active Substance: DEXAMETHASONE
     Dosage: UNK
     Route: 065
     Dates: start: 200906
  14. OCTREOTIDE [Suspect]
     Active Substance: OCTREOTIDE
     Indication: Hypoglycaemia
     Dosage: 100 MICROGRAM, TID
     Route: 058
  15. DEXTROSE [Concomitant]
     Active Substance: DEXTROSE MONOHYDRATE
     Indication: Hypoglycaemia
     Dosage: UNK
     Route: 065
  16. MITOTANE [Concomitant]
     Active Substance: MITOTANE
     Indication: Adrenocortical carcinoma
     Dosage: 1 GRAM, TID
     Route: 065
  17. MITOTANE [Concomitant]
     Active Substance: MITOTANE
     Indication: Metastases to liver
     Dosage: 4 GRAM, QD (DAILY DOSE INCREASED)
     Route: 065
  18. MITOTANE [Concomitant]
     Active Substance: MITOTANE
     Indication: Metastases to lung
     Dosage: 7 GRAM, QD ((OVER THE NEXT 3 MONTHS DAILY DOSE INCREASED))
     Route: 065
  19. DEXTROSE [Concomitant]
     Active Substance: DEXTROSE MONOHYDRATE
     Indication: Hypoglycaemia
     Dosage: UNK
     Route: 065
     Dates: start: 201107

REACTIONS (4)
  - Multiple-drug resistance [Fatal]
  - Therapy partial responder [Fatal]
  - Malignant neoplasm progression [Fatal]
  - Off label use [Unknown]
